FAERS Safety Report 9879854 (Version 2)
Quarter: 2014Q1

REPORT INFORMATION
  Report Type: Spontaneous
  Country: US (occurrence: US)
  Receive Date: 20140206
  Receipt Date: 20140206
  Transmission Date: 20141002
  Serious: Yes (Death)
  Sender: FDA-Public Use
  Company Number: US-GE HEALTHCARE MEDICAL DIAGNOSTICS-OSCN-PR-0910S-0443

PATIENT
  Age: 50 Year
  Sex: Male

DRUGS (6)
  1. OMNISCAN [Suspect]
     Indication: ARTERIOVENOUS FISTULA
     Dates: start: 20060804, end: 20060804
  2. OMNISCAN [Suspect]
     Indication: OSTEOMYELITIS
     Dates: start: 20060805, end: 20060805
  3. GADOLINIUM (UNSPECIFIED) [Suspect]
     Indication: PRODUCT USED FOR UNKNOWN INDICATION
     Dates: start: 20060804, end: 20060804
  4. MAGNEVIST [Suspect]
     Indication: OSTEOMYELITIS
     Dates: start: 20060519, end: 20060519
  5. MAGNEVIST [Suspect]
     Indication: EXTRADURAL ABSCESS
     Dates: start: 20061013, end: 20061013
  6. MAGNEVIST [Suspect]
     Indication: MYOSITIS
     Dates: start: 20061017, end: 20061017

REACTIONS (1)
  - Nephrogenic systemic fibrosis [Fatal]
